FAERS Safety Report 25794726 (Version 1)
Quarter: 2025Q3

REPORT INFORMATION
  Report Type: Spontaneous
  Country: US (occurrence: US)
  Receive Date: 20250912
  Receipt Date: 20250912
  Transmission Date: 20251020
  Serious: No
  Sender: BIOCON
  Company Number: US-MIMS-BCONMC-6808

PATIENT

DRUGS (1)
  1. SEMGLEE (INSULIN GLARGINE-YFGN) [Suspect]
     Active Substance: INSULIN GLARGINE-YFGN
     Indication: Type 1 diabetes mellitus
     Dosage: 55 UNITS/ML, QD
     Route: 065

REACTIONS (5)
  - Blood glucose abnormal [Unknown]
  - Dose calculation error [Unknown]
  - Device breakage [Unknown]
  - Device issue [Unknown]
  - Device delivery system issue [Unknown]
